FAERS Safety Report 6832779-3 (Version None)
Quarter: 2010Q3

REPORT INFORMATION
  Report Type: 
  Country: None (occurrence: None)
  Receive Date: 20100712
  Receipt Date: 20070320
  Transmission Date: 20110219
  Serious: No
  Sender: FDA-Public Use
  Company Number: US-PFIZER INC-2007023434

PATIENT
  Sex: Male

DRUGS (4)
  1. CHANTIX [Suspect]
     Dates: start: 20070301
  2. VALSARTAN [Concomitant]
  3. VYTORIN [Concomitant]
     Indication: BLOOD CHOLESTEROL
  4. VYTORIN [Concomitant]
     Indication: BLOOD PRESSURE

REACTIONS (2)
  - INSOMNIA [None]
  - SLEEP DISORDER [None]
